FAERS Safety Report 8470254 (Version 4)
Quarter: 2014Q1

REPORT INFORMATION
  Report Type: Report from Study
  Country: US (occurrence: US)
  Receive Date: 20120321
  Receipt Date: 20140319
  Transmission Date: 20141002
  Serious: Yes (Other)
  Sender: FDA-Public Use
  Company Number: US-JNJFOC-20120307078

PATIENT
  Age: 63 Year
  Sex: Female
  Weight: 77.11 kg

DRUGS (9)
  1. SIMPONI [Suspect]
     Indication: RHEUMATOID ARTHRITIS
     Route: 058
     Dates: start: 201107
  2. LEVOTHYROXINE [Concomitant]
     Indication: HYPOTHYROIDISM
     Route: 048
  3. SPIRONOLACTONE [Concomitant]
     Route: 048
  4. ZYRTEC [Concomitant]
     Indication: MULTIPLE ALLERGIES
     Route: 048
     Dates: start: 2010
  5. TIZANIDINE [Concomitant]
     Indication: MUSCLE RELAXANT THERAPY
     Route: 048
     Dates: start: 2007
  6. ZETIA [Concomitant]
     Indication: BLOOD CHOLESTEROL
     Route: 048
     Dates: start: 2010
  7. FLUTICASONE [Concomitant]
     Indication: MULTIPLE ALLERGIES
     Dates: start: 2010
  8. FOLIC ACID [Concomitant]
     Indication: RHEUMATOID ARTHRITIS
     Route: 048
     Dates: start: 2006
  9. METHOTREXATE [Concomitant]
     Indication: RHEUMATOID ARTHRITIS
     Route: 048
     Dates: start: 2006

REACTIONS (7)
  - Herpes virus infection [Recovered/Resolved]
  - Sinusitis [Recovered/Resolved]
  - Ear infection [Recovered/Resolved]
  - Contusion [Recovered/Resolved]
  - Drug dose omission [Unknown]
  - Injection site bruising [Recovered/Resolved]
  - Device malfunction [Unknown]
